FAERS Safety Report 8059456-8 (Version None)
Quarter: 2012Q1

REPORT INFORMATION
  Report Type: 
  Country: None (occurrence: None)
  Receive Date: 20120120
  Receipt Date: 20120118
  Transmission Date: 20120608
  Serious: Yes (Other)
  Sender: FDA-Public Use
  Company Number: DE-ROCHE-1031766

PATIENT
  Sex: Female

DRUGS (2)
  1. AVASTIN [Suspect]
     Indication: BREAST CANCER
  2. TAXOL [Concomitant]
     Indication: BREAST CANCER

REACTIONS (3)
  - VARICES OESOPHAGEAL [None]
  - PORTAL HYPERTENSION [None]
  - ASCITES [None]
